FAERS Safety Report 8060639-1 (Version None)
Quarter: 2012Q1

REPORT INFORMATION
  Report Type: 
  Country: None (occurrence: None)
  Receive Date: 20120119
  Receipt Date: 20120119
  Transmission Date: 20120608
  Serious: Yes (Disabling)
  Sender: FDA-Public Use
  Company Number: None

PATIENT
  Age: 68 Year

DRUGS (1)
  1. BONIVA [Suspect]
     Dosage: 1 A MO
     Dates: start: 20080101, end: 20110401

REACTIONS (2)
  - NECK PAIN [None]
  - MUSCULOSKELETAL STIFFNESS [None]
